FAERS Safety Report 14917646 (Version 1)
Quarter: 2018Q2

REPORT INFORMATION
  Report Type: Spontaneous
  Country: FR (occurrence: FR)
  Receive Date: 20180521
  Receipt Date: 20180521
  Transmission Date: 20180711
  Serious: Yes (Other)
  Sender: FDA-Public Use
  Company Number: FR-MERCK KGAA-2048101

PATIENT
  Sex: Female

DRUGS (1)
  1. NOVOTHYROX [Suspect]
     Active Substance: LEVOTHYROXINE SODIUM
     Indication: PRODUCT USED FOR UNKNOWN INDICATION

REACTIONS (28)
  - Asthenia [None]
  - Musculoskeletal pain [None]
  - Fatigue [None]
  - Bradykinesia [None]
  - Visual impairment [None]
  - Slow response to stimuli [None]
  - Mental impairment [None]
  - Myalgia [None]
  - Fear-related avoidance of activities [None]
  - Bradyphrenia [None]
  - Indifference [None]
  - Decreased activity [None]
  - Decreased interest [None]
  - Emotional poverty [None]
  - Abdominal pain upper [None]
  - Hypersomnia [None]
  - Lethargy [None]
  - Gastrointestinal disorder [None]
  - Psychomotor retardation [None]
  - Personal relationship issue [None]
  - Yawning [None]
  - Emotional disorder [None]
  - Flatulence [None]
  - Feeling abnormal [None]
  - Cognitive disorder [None]
  - Impaired work ability [None]
  - Pain [None]
  - Malaise [None]
